FAERS Safety Report 6440348-2 (Version None)
Quarter: 2009Q4

REPORT INFORMATION
  Report Type: 
  Country: None (occurrence: None)
  Receive Date: 20091113
  Receipt Date: 20091103
  Transmission Date: 20100525
  Serious: Yes (Hospitalization)
  Sender: FDA-Public Use
  Company Number: PHHY2009IT40293

PATIENT
  Sex: Female

DRUGS (8)
  1. SINTROM [Suspect]
     Indication: ANTICOAGULANT THERAPY
     Dosage: 1 POSOLOGIC UNIT
     Dates: start: 20050101
  2. SINTROM [Suspect]
     Indication: ARRHYTHMIA
  3. VOLTAREN [Suspect]
     Dosage: 1 POSOLOGIC UNIT UPON NEEDED
     Dates: start: 20090101
  4. SUCRALFIN [Concomitant]
  5. TAPAZOLE [Concomitant]
  6. ISOPTIN [Concomitant]
     Dosage: 180 MG, UNK
     Route: 048
  7. MINITRAN [Concomitant]
  8. MODURETIC 5-50 [Concomitant]

REACTIONS (7)
  - ABDOMINAL PAIN UPPER [None]
  - ASTHENIA [None]
  - DIVERTICULUM INTESTINAL [None]
  - FAECES DISCOLOURED [None]
  - GASTROINTESTINAL MUCOSAL DISORDER [None]
  - MELAENA [None]
  - PALLOR [None]
